FAERS Safety Report 17660037 (Version 1)
Quarter: 2020Q2

REPORT INFORMATION
  Report Type: Spontaneous
  Country: CA (occurrence: CA)
  Receive Date: 20200413
  Receipt Date: 20200413
  Transmission Date: 20200713
  Serious: Yes (Life-Threatening, Hospitalization, Disabling)
  Sender: FDA-Public Use
  Company Number: CA-TEVA-2020-CA-1220943

PATIENT
  Age: 60 Year
  Sex: Male

DRUGS (38)
  1. PREDNISOLONE. [Suspect]
     Active Substance: PREDNISOLONE
     Indication: DIFFUSE LARGE B-CELL LYMPHOMA
     Route: 048
  2. CRESTOR [Concomitant]
     Active Substance: ROSUVASTATIN CALCIUM
  3. GLUCOSAMINE SULFATE [Concomitant]
     Active Substance: GLUCOSAMINE SULFATE
  4. DOXORUBICIN HYDROCHLORIDE. [Suspect]
     Active Substance: DOXORUBICIN HYDROCHLORIDE
     Indication: DIFFUSE LARGE B-CELL LYMPHOMA
     Dosage: 118 MG
     Route: 042
  5. CHOLECALCIFEROL [Concomitant]
     Active Substance: CHOLECALCIFEROL
  6. CLAVULIN [AMOXICILLIN SODIUM;CLAVULANATE POTASSIUM] [Concomitant]
     Active Substance: AMOXICILLIN\CLAVULANATE POTASSIUM
  7. HUMULIN NOS [Concomitant]
     Active Substance: INSULIN HUMAN
  8. MOMETASONE FUROATE. [Concomitant]
     Active Substance: MOMETASONE FUROATE
  9. ONGLYZA [Concomitant]
     Active Substance: SAXAGLIPTIN HYDROCHLORIDE
  10. POTASSIUM CHLORIDE. [Concomitant]
     Active Substance: POTASSIUM CHLORIDE
  11. SODIUM CHLORIDE. [Concomitant]
     Active Substance: SODIUM CHLORIDE
  12. CYCLOPHOSPHAMIDE. [Suspect]
     Active Substance: CYCLOPHOSPHAMIDE
     Indication: DIFFUSE LARGE B-CELL LYMPHOMA
     Route: 042
  13. FENOFIBRATE. [Concomitant]
     Active Substance: FENOFIBRATE
  14. HYDROCORTISONE. [Concomitant]
     Active Substance: HYDROCORTISONE
  15. INSULIN HUMAN [Concomitant]
     Active Substance: INSULIN HUMAN
  16. MORPHINE [Concomitant]
     Active Substance: MORPHINE
  17. AMOCILLIN SODIUM AND CLAVULANATE POTASSIUM [Concomitant]
  18. FENTANYL. [Concomitant]
     Active Substance: FENTANYL
  19. FLORINEF ACETATE [Concomitant]
     Active Substance: FLUDROCORTISONE ACETATE
  20. HEPARIN SODIUM. [Concomitant]
     Active Substance: HEPARIN SODIUM
  21. VITAMIN C [Concomitant]
     Active Substance: ASCORBIC ACID
  22. PIOGLITAZONE. [Concomitant]
     Active Substance: PIOGLITAZONE
  23. SULFADIAZINE. [Concomitant]
     Active Substance: SULFADIAZINE
  24. VINCRISTINE SULFATE. [Suspect]
     Active Substance: VINCRISTINE SULFATE
     Indication: DIFFUSE LARGE B-CELL LYMPHOMA
     Dosage: 2 MG
     Route: 042
  25. ACETAMINOPHEN. [Concomitant]
     Active Substance: ACETAMINOPHEN
  26. COLCHICINE. [Concomitant]
     Active Substance: COLCHICINE
  27. DIPHENHYDRAMINE. [Concomitant]
     Active Substance: DIPHENHYDRAMINE
  28. ENOXAPARIN [Concomitant]
     Active Substance: ENOXAPARIN
  29. GRANISETRON [Concomitant]
     Active Substance: GRANISETRON
  30. METFORMIN [Concomitant]
     Active Substance: METFORMIN HYDROCHLORIDE
  31. OXYCODONE [Concomitant]
     Active Substance: OXYCODONE
  32. OXYCODONE AND ACETAMINOPHEN [Concomitant]
     Active Substance: ACETAMINOPHEN\OXYCODONE HYDROCHLORIDE
  33. RANITIDINE. [Concomitant]
     Active Substance: RANITIDINE
  34. ALEVE [Concomitant]
     Active Substance: NAPROXEN SODIUM
  35. AVAPRO [Concomitant]
     Active Substance: IRBESARTAN
  36. CYANOCOBALAMIN. [Concomitant]
     Active Substance: CYANOCOBALAMIN
  37. KETOROLAC [Concomitant]
     Active Substance: KETOROLAC TROMETHAMINE
  38. SOLU-MEDROL [Concomitant]
     Active Substance: METHYLPREDNISOLONE SODIUM SUCCINATE

REACTIONS (19)
  - Addison^s disease [Unknown]
  - Atelectasis [Unknown]
  - Cellulitis [Unknown]
  - Constipation [Unknown]
  - Fatigue [Unknown]
  - Haemoglobin decreased [Unknown]
  - Electrocardiogram QT prolonged [Unknown]
  - Malaise [Unknown]
  - Cardiomyopathy [Unknown]
  - Abdominal symptom [Unknown]
  - Condition aggravated [Unknown]
  - Pericardial effusion [Unknown]
  - Febrile neutropenia [Unknown]
  - Hypotension [Unknown]
  - Pyrexia [Unknown]
  - Acute myocardial infarction [Unknown]
  - Chills [Unknown]
  - Left ventricular dysfunction [Unknown]
  - Adrenal insufficiency [Unknown]
